FAERS Safety Report 6016339-2 (Version None)
Quarter: 2008Q4

REPORT INFORMATION
  Report Type: 
  Country: None (occurrence: None)
  Receive Date: 20081218
  Receipt Date: 20081202
  Transmission Date: 20090506
  Serious: No
  Sender: FDA-Public Use
  Company Number: 8037560

PATIENT
  Weight: 4 kg

DRUGS (4)
  1. LORTAB [Suspect]
     Dosage: TRP
     Route: 064
     Dates: start: 20070701, end: 20070101
  2. REBIF [Suspect]
     Dosage: 44 MCG 3/W, TRP
     Route: 064
     Dates: start: 20070701, end: 20070801
  3. ZOLOFT [Suspect]
     Dosage: TRP
     Route: 064
     Dates: end: 20070101
  4. BIRTH CONTROL PILL [Suspect]
     Dosage: TRP
     Route: 064
     Dates: end: 20070101

REACTIONS (2)
  - MATERNAL DRUGS AFFECTING FOETUS [None]
  - SOLITARY KIDNEY [None]
